FAERS Safety Report 7636202-0 (Version None)
Quarter: 2011Q3

REPORT INFORMATION
  Report Type: 
  Country: None (occurrence: None)
  Receive Date: 20110722
  Receipt Date: 20110722
  Transmission Date: 20111222
  Serious: Yes (Hospitalization, Disabling, Other)
  Sender: FDA-Public Use
  Company Number: None

PATIENT
  Sex: Male
  Weight: 102.0593 kg

DRUGS (1)
  1. RISPERIDONE [Suspect]
     Indication: SCHIZOPHRENIA
     Dosage: 1 TABLET AT BEDTIME EACH 30 DAY'S
     Dates: start: 20050201, end: 20110711

REACTIONS (4)
  - SOMNOLENCE [None]
  - VISION BLURRED [None]
  - MUSCLE SPASMS [None]
  - HEADACHE [None]
